FAERS Safety Report 14457718 (Version 1)
Quarter: 2018Q1

REPORT INFORMATION
  Report Type: Spontaneous
  Country: US (occurrence: US)
  Receive Date: 20180129
  Receipt Date: 20180129
  Transmission Date: 20180509
  Serious: Yes (Other)
  Sender: FDA-Public Use
  Company Number: None

PATIENT
  Age: 41 Year
  Sex: Female
  Weight: 80.55 kg

DRUGS (4)
  1. GUMMY VITAMINS [Concomitant]
  2. CONTRAVE [Suspect]
     Active Substance: BUPROPION HYDROCHLORIDE\NALTREXONE HYDROCHLORIDE
     Indication: OBESITY
     Dosage: ?          QUANTITY:2 TABLET(S);?
     Route: 048
  3. PRISTIQ EXTENDED-RELEASE [Concomitant]
     Active Substance: DESVENLAFAXINE SUCCINATE
  4. METROPEROL [Concomitant]

REACTIONS (2)
  - Blood pressure increased [None]
  - Drug interaction [None]

NARRATIVE: CASE EVENT DATE: 20180125
